FAERS Safety Report 7745202 (Version 3)
Quarter: 2013Q4

REPORT INFORMATION
  Report Type: Spontaneous
  Country: US (occurrence: US)
  Receive Date: 20101231
  Receipt Date: 20131223
  Transmission Date: 20140711
  Serious: Yes (Other)
  Sender: FDA-Public Use
  Company Number: US-BAYER-2010-008937

PATIENT
  Age: 36 Year
  Sex: Female
  Weight: 69.9 kg

DRUGS (1)
  1. YASMIN [Suspect]
     Dosage: UNK
     Dates: end: 2004

REACTIONS (4)
  - Cholecystitis [None]
  - Cholelithiasis [None]
  - Injury [None]
  - Pain [None]
